FAERS Safety Report 20634669 (Version 1)
Quarter: 2022Q1

REPORT INFORMATION
  Report Type: Spontaneous
  Country: US (occurrence: None)
  Receive Date: 20220325
  Receipt Date: 20220325
  Transmission Date: 20220423
  Serious: No
  Sender: FDA-Public Use
  Company Number: 2022A096687

PATIENT
  Sex: Male
  Weight: 83.9 kg

DRUGS (1)
  1. BYDUREON BCISE [Suspect]
     Active Substance: EXENATIDE
     Indication: Type 2 diabetes mellitus
     Route: 058
     Dates: start: 20220115

REACTIONS (12)
  - Decreased appetite [Unknown]
  - Condition aggravated [Unknown]
  - Injection site mass [Unknown]
  - Skin disorder [Unknown]
  - Wound [Unknown]
  - Scratch [Unknown]
  - Eczema [Unknown]
  - Colitis ulcerative [Unknown]
  - Rheumatoid arthritis [Unknown]
  - Psoriasis [Unknown]
  - Adverse drug reaction [Unknown]
  - Pruritus [Unknown]
